FAERS Safety Report 11623774 (Version 1)
Quarter: 2015Q4

REPORT INFORMATION
  Report Type: Spontaneous
  Country: US (occurrence: US)
  Receive Date: 20151013
  Receipt Date: 20151013
  Transmission Date: 20160304
  Serious: No
  Sender: FDA-Public Use
  Company Number: US-JNJFOC-20141119571

PATIENT
  Sex: Male
  Weight: 65.77 kg

DRUGS (1)
  1. TYLENOL EXTRA STRENGTH [Suspect]
     Active Substance: ACETAMINOPHEN
     Indication: PAIN
     Dosage: 2 TABLETS EVERY 8 HOURS DAILY
     Route: 048

REACTIONS (3)
  - Inappropriate schedule of drug administration [Unknown]
  - Intentional product use issue [Unknown]
  - Product use issue [Unknown]
